FAERS Safety Report 6171031-9 (Version None)
Quarter: 2009Q2

REPORT INFORMATION
  Report Type: 
  Country: None (occurrence: None)
  Receive Date: 20090429
  Receipt Date: 20090423
  Transmission Date: 20091009
  Serious: No
  Sender: FDA-Public Use
  Company Number: US-JNJFOC-20090406370

PATIENT
  Sex: Male
  Weight: 100.25 kg

DRUGS (3)
  1. DURAGESIC-100 [Suspect]
     Indication: COMPLEX REGIONAL PAIN SYNDROME
     Route: 062
  2. DIOVAN [Concomitant]
     Indication: HYPERTENSION
     Route: 048
  3. UNSPECIFIED MEDICATIONS [Concomitant]

REACTIONS (1)
  - WRONG TECHNIQUE IN DRUG USAGE PROCESS [None]
